FAERS Safety Report 11878424 (Version 1)
Quarter: 2015Q4

REPORT INFORMATION
  Report Type: Spontaneous
  Country: US (occurrence: None)
  Receive Date: 20151229
  Receipt Date: 20151229
  Transmission Date: 20160305
  Serious: Yes (Hospitalization)
  Sender: FDA-Public Use
  Company Number: None

PATIENT
  Age: 69 Year
  Sex: Male
  Weight: 66 kg

DRUGS (3)
  1. LENALIDOMIDE [Suspect]
     Active Substance: LENALIDOMIDE
     Dates: end: 20151117
  2. BENDAMUSTINE HYDROCHLORIDE [Suspect]
     Active Substance: BENDAMUSTINE HYDROCHLORIDE
     Dates: end: 20150611
  3. RITUXIMAB [Concomitant]
     Active Substance: RITUXIMAB
     Dates: end: 20151028

REACTIONS (7)
  - Acute kidney injury [None]
  - Neutropenia [None]
  - Hypotension [None]
  - Bacterial sepsis [None]
  - Hypokalaemia [None]
  - Hyperalbuminaemia [None]
  - Diarrhoea [None]

NARRATIVE: CASE EVENT DATE: 20151122
